FAERS Safety Report 14908477 (Version 3)
Quarter: 2019Q4

REPORT INFORMATION
  Report Type: Spontaneous
  Country: US (occurrence: US)
  Receive Date: 20180517
  Receipt Date: 20191022
  Transmission Date: 20200122
  Serious: Yes (Hospitalization, Other)
  Sender: FDA-Public Use
  Company Number: US-PFIZER INC-2018200524

PATIENT
  Age: 76 Year
  Sex: Male

DRUGS (5)
  1. CIALIS [Suspect]
     Active Substance: TADALAFIL
     Indication: ERECTILE DYSFUNCTION
     Dosage: 20 MG, 1-2 TIMES PER WEEK
     Route: 048
     Dates: start: 20140731, end: 20141231
  2. IMBRUVICA [Concomitant]
     Active Substance: IBRUTINIB
     Indication: CHRONIC LYMPHOCYTIC LEUKAEMIA
     Dosage: UNK
     Dates: start: 201802
  3. VIAGRA [Suspect]
     Active Substance: SILDENAFIL CITRATE
     Dosage: 50 MG, 1-2 TIMES PER WEEK
     Route: 048
     Dates: start: 20110329, end: 20150916
  4. VIAGRA [Suspect]
     Active Substance: SILDENAFIL CITRATE
     Indication: ERECTILE DYSFUNCTION
     Dosage: UNK
     Dates: start: 2009
  5. VIAGRA [Suspect]
     Active Substance: SILDENAFIL CITRATE
     Dosage: 100 MG, 1-2 TIMES PER WEEK
     Route: 048
     Dates: start: 20091023, end: 20130911

REACTIONS (3)
  - Neoplasm progression [Unknown]
  - Atrial fibrillation [Recovering/Resolving]
  - Malignant melanoma [Unknown]

NARRATIVE: CASE EVENT DATE: 201208
